FAERS Safety Report 5397139-3 (Version None)
Quarter: 2007Q3

REPORT INFORMATION
  Report Type: 
  Country: None (occurrence: None)
  Receive Date: 20070725
  Receipt Date: 20070713
  Transmission Date: 20080115
  Serious: Yes (Hospitalization)
  Sender: FDA-Public Use
  Company Number: JP-PFIZER INC-2007014234

PATIENT
  Sex: Female

DRUGS (11)
  1. LIPITOR [Suspect]
     Indication: HYPERLIPIDAEMIA
     Dosage: DAILY DOSE:10MG
     Route: 048
     Dates: start: 20061101, end: 20070220
  2. PREDONINE [Concomitant]
     Indication: INTERSTITIAL LUNG DISEASE
     Dosage: DAILY DOSE:10MG
     Route: 048
  3. RABEPRAZOLE SODIUM [Concomitant]
     Indication: REFLUX OESOPHAGITIS
     Dosage: DAILY DOSE:10MG
     Route: 048
  4. FRANDOL [Concomitant]
     Indication: ANGINA PECTORIS
     Dosage: DAILY DOSE:20MG
  5. ALLOPURINOL [Concomitant]
     Indication: HYPERURICAEMIA
     Dosage: DAILY DOSE:100MG
     Route: 048
  6. VASOLAN [Concomitant]
     Indication: ATRIAL FIBRILLATION
     Route: 048
  7. CALBLOCK [Concomitant]
     Indication: HYPERTENSION
     Route: 048
  8. TORSEMIDE [Concomitant]
     Indication: CARDIAC FAILURE
     Route: 048
  9. LASIX [Concomitant]
     Indication: CARDIAC FAILURE
     Route: 048
     Dates: start: 20060613
  10. ALDACTONE [Concomitant]
     Indication: CARDIAC FAILURE
     Route: 048
     Dates: start: 20060613
  11. ALENDRONATE SODIUM [Concomitant]
     Indication: OSTEOPOROSIS
     Route: 048
     Dates: start: 20060905

REACTIONS (1)
  - DIABETES MELLITUS [None]
